FAERS Safety Report 21159016 (Version 1)
Quarter: 2022Q3

REPORT INFORMATION
  Report Type: Spontaneous
  Country: US (occurrence: US)
  Receive Date: 20220802
  Receipt Date: 20220802
  Transmission Date: 20221027
  Serious: Yes (Other)
  Sender: FDA-Public Use
  Company Number: US-COLGATE PALMOLIVE COMPANY-20220701394

PATIENT
  Sex: Female

DRUGS (1)
  1. COLGATE TOTAL SF ADVANCED WHITENING [Suspect]
     Active Substance: STANNOUS FLUORIDE
     Dosage: UNKNOWN DOSE, EVERDAY ONCE OR TWICE A DAY
     Dates: start: 202207, end: 202207

REACTIONS (4)
  - Abdominal pain upper [Recovering/Resolving]
  - Vomiting [Recovering/Resolving]
  - Dyspepsia [Recovering/Resolving]
  - Diarrhoea [Recovering/Resolving]

NARRATIVE: CASE EVENT DATE: 20220701
